FAERS Safety Report 23080811 (Version 5)
Quarter: 2023Q4

REPORT INFORMATION
  Report Type: Spontaneous
  Country: US (occurrence: US)
  Receive Date: 20231018
  Receipt Date: 20231222
  Transmission Date: 20240110
  Serious: No
  Sender: FDA-Public Use
  Company Number: US-PFIZER INC-PV202300148991

PATIENT
  Age: 69 Year
  Sex: Female

DRUGS (4)
  1. SOMAVERT [Suspect]
     Active Substance: PEGVISOMANT
     Indication: Acromegaly
     Dosage: 20 MG, WEEKLY
  2. SOMAVERT [Suspect]
     Active Substance: PEGVISOMANT
     Dosage: 20 MG (20 MG/3X WEEK)
  3. SOMAVERT [Suspect]
     Active Substance: PEGVISOMANT
     Dosage: 20 MG
     Dates: start: 20230908
  4. SOMAVERT [Suspect]
     Active Substance: PEGVISOMANT
     Dosage: 20 MG

REACTIONS (3)
  - Off label use [Unknown]
  - Renal function test abnormal [Unknown]
  - Insulin-like growth factor abnormal [Unknown]
